FAERS Safety Report 6687471-5 (Version None)
Quarter: 2010Q2

REPORT INFORMATION
  Report Type: 
  Country: None (occurrence: None)
  Receive Date: 20100416
  Receipt Date: 20100416
  Transmission Date: 20101027
  Serious: Yes (Hospitalization)
  Sender: FDA-Public Use
  Company Number: None

PATIENT
  Age: 56 Year
  Sex: Male
  Weight: 100.7 kg

DRUGS (2)
  1. LORATADINE [Suspect]
     Indication: RHINITIS
     Dosage: 10 MG EVERY DAY PO
     Route: 048
     Dates: start: 20091228, end: 20091231
  2. LISINOPRIL [Suspect]
     Indication: HYPERTENSION
     Dosage: 20 MG EVERY DAY PO
     Route: 048
     Dates: start: 20081014, end: 20091231

REACTIONS (1)
  - ANGIOEDEMA [None]
